FAERS Safety Report 18603146 (Version 1)
Quarter: 2020Q4

REPORT INFORMATION
  Report Type: Spontaneous
  Country: US (occurrence: US)
  Receive Date: 20201210
  Receipt Date: 20201210
  Transmission Date: 20210114
  Serious: No
  Sender: FDA-Public Use
  Company Number: US-PURDUE PHARMA-USA-2020-0150509

PATIENT
  Age: 50 Year
  Sex: Female

DRUGS (1)
  1. HYDROMORPHONE HCL (SIMILAR TO 19-892) [Suspect]
     Active Substance: HYDROMORPHONE HYDROCHLORIDE
     Indication: PAIN
     Dosage: 2 MG, TID
     Route: 048

REACTIONS (2)
  - Pain [Unknown]
  - Inadequate analgesia [Not Recovered/Not Resolved]
